FAERS Safety Report 18145782 (Version 2)
Quarter: 2020Q4

REPORT INFORMATION
  Report Type: Spontaneous
  Country: PT (occurrence: PT)
  Receive Date: 20200813
  Receipt Date: 20201110
  Transmission Date: 20210113
  Serious: Yes (Hospitalization, Other)
  Sender: FDA-Public Use
  Company Number: PT-VALIDUS PHARMACEUTICALS LLC-PT-2020VAL000665

PATIENT

DRUGS (1)
  1. FUROSEMIDE. [Suspect]
     Active Substance: FUROSEMIDE
     Indication: OEDEMA PERIPHERAL
     Dosage: 1 TABLET 4X DAY
     Route: 048

REACTIONS (7)
  - Anxiety [Unknown]
  - Thyroid mass [Unknown]
  - Hyperthyroidism [Unknown]
  - Impaired work ability [Unknown]
  - Drug ineffective [Unknown]
  - Insomnia [Unknown]
  - Hypotension [Unknown]
